FAERS Safety Report 16678551 (Version 5)
Quarter: 2020Q1

REPORT INFORMATION
  Report Type: Spontaneous
  Country: JP (occurrence: JP)
  Receive Date: 20190807
  Receipt Date: 20200313
  Transmission Date: 20200409
  Serious: Yes (Death, Hospitalization)
  Sender: FDA-Public Use
  Company Number: JP-EISAI MEDICAL RESEARCH-EC-2019-059939

PATIENT
  Age: 71 Year
  Sex: Male

DRUGS (14)
  1. LENVIMA [Suspect]
     Active Substance: LENVATINIB
     Indication: HEPATOCELLULAR CARCINOMA
     Route: 048
     Dates: start: 201810, end: 2018
  2. BETAMETHASONE. [Concomitant]
     Active Substance: BETAMETHASONE
     Route: 065
  3. BETAMETHASONE. [Concomitant]
     Active Substance: BETAMETHASONE
     Route: 065
  4. BETAMETHASONE. [Concomitant]
     Active Substance: BETAMETHASONE
     Route: 065
  5. BETAMETHASONE. [Concomitant]
     Active Substance: BETAMETHASONE
     Route: 065
  6. BETAMETHASONE. [Concomitant]
     Active Substance: BETAMETHASONE
     Route: 065
  7. BETAMETHASONE. [Concomitant]
     Active Substance: BETAMETHASONE
     Route: 065
  8. LENVIMA [Suspect]
     Active Substance: LENVATINIB
     Route: 048
     Dates: start: 201902, end: 2019
  9. BETAMETHASONE. [Concomitant]
     Active Substance: BETAMETHASONE
     Route: 065
  10. LENVIMA [Suspect]
     Active Substance: LENVATINIB
     Route: 048
     Dates: start: 201811
  11. BETAMETHASONE. [Concomitant]
     Active Substance: BETAMETHASONE
     Route: 065
  12. BETAMETHASONE. [Concomitant]
     Active Substance: BETAMETHASONE
     Route: 065
  13. LENVIMA [Suspect]
     Active Substance: LENVATINIB
     Route: 048
     Dates: start: 201903
  14. BETAMETHASONE. [Concomitant]
     Active Substance: BETAMETHASONE
     Indication: PRODUCT USED FOR UNKNOWN INDICATION
     Route: 065

REACTIONS (8)
  - Thrombophlebitis migrans [Unknown]
  - Decreased appetite [Recovering/Resolving]
  - Hypothyroidism [Recovering/Resolving]
  - Hypertension [Recovering/Resolving]
  - Tumour lysis syndrome [Fatal]
  - Fatigue [Recovered/Resolved]
  - Malaise [Recovering/Resolving]
  - Diarrhoea [Recovering/Resolving]

NARRATIVE: CASE EVENT DATE: 2018
